FAERS Safety Report 14923426 (Version 2)
Quarter: 2018Q2

REPORT INFORMATION
  Report Type: Spontaneous
  Country: US (occurrence: US)
  Receive Date: 20180522
  Receipt Date: 20180618
  Transmission Date: 20180711
  Serious: No
  Sender: FDA-Public Use
  Company Number: US-TEVA-2018-US-895093

PATIENT

DRUGS (1)
  1. AMOXAPINE. [Suspect]
     Active Substance: AMOXAPINE

REACTIONS (2)
  - Product solubility abnormal [Unknown]
  - Wrong technique in product usage process [Unknown]
